FAERS Safety Report 5890283-3 (Version None)
Quarter: 2008Q3

REPORT INFORMATION
  Report Type: 
  Country: None (occurrence: None)
  Receive Date: 20080918
  Receipt Date: 20080910
  Transmission Date: 20090109
  Serious: Yes (Disabling)
  Sender: FDA-Public Use
  Company Number: 08H-163-0314883-00

PATIENT
  Sex: Male

DRUGS (1)
  1. BUPIVACAINE INJECTION (BUPIVACAINE HYDROCHLORIDE INJECTION) (BUPIVACAI [Suspect]
     Indication: ANALGESIA
     Dosage: CONTINUOUS, INJECTION
     Dates: start: 20070401

REACTIONS (3)
  - CHONDROLYSIS [None]
  - JOINT ARTHROPLASTY [None]
  - MUSCULOSKELETAL DISORDER [None]
